FAERS Safety Report 12968819 (Version 1)
Quarter: 2016Q4

REPORT INFORMATION
  Report Type: Spontaneous
  Country: US (occurrence: US)
  Receive Date: 20161121
  Receipt Date: 20161121
  Transmission Date: 20170207
  Serious: No
  Sender: FDA-Public Use
  Company Number: None

PATIENT
  Age: 5 Year
  Sex: Female
  Weight: 8.81 kg

DRUGS (1)
  1. NUTROPIN [Suspect]
     Active Substance: SOMATROPIN
     Indication: CHRONIC KIDNEY DISEASE
     Dosage: 0.8MG 6 DAYS/WEEK SUBCUTANEOUS
     Route: 058

REACTIONS (1)
  - Blood parathyroid hormone increased [None]

NARRATIVE: CASE EVENT DATE: 20161113
